FAERS Safety Report 10626576 (Version 3)
Quarter: 2015Q1

REPORT INFORMATION
  Report Type: Report from Study
  Country: BR (occurrence: BR)
  Receive Date: 20141204
  Receipt Date: 20150211
  Transmission Date: 20150720
  Serious: Yes (Other)
  Sender: FDA-Public Use
  Company Number: BR-BAYER-2014-175991

PATIENT
  Age: 73 Year
  Sex: Male
  Weight: 69.84 kg

DRUGS (5)
  1. ESPIRONOLACTONA [Concomitant]
     Active Substance: SPIRONOLACTONE
     Indication: ASCITES
     Dosage: 1 DF, OM
     Route: 048
     Dates: start: 2014
  2. LACTULONA [Concomitant]
     Indication: CONSTIPATION
     Dosage: 10 ML, PRN
     Route: 048
     Dates: start: 201408
  3. NEXAVAR [Suspect]
     Active Substance: SORAFENIB
     Indication: HEPATIC NEOPLASM
     Dosage: 400 MG, BID
     Route: 048
     Dates: end: 201501
  4. NORIPURUM [Concomitant]
     Active Substance: IRON POLYMALTOSE
     Indication: PLATELET COUNT DECREASED
     Dosage: 1 DF, UNK
     Route: 048
  5. FUROSEMIDE. [Concomitant]
     Active Substance: FUROSEMIDE
     Indication: ASCITES
     Dosage: 1 DF, OM
     Route: 048
     Dates: start: 2014

REACTIONS (12)
  - Somnolence [Recovering/Resolving]
  - Pallor [Recovering/Resolving]
  - Decreased appetite [Recovered/Resolved]
  - Nausea [Recovered/Resolved]
  - Metastases to spine [None]
  - Skin exfoliation [Recovering/Resolving]
  - Retching [Recovering/Resolving]
  - Anaemia [Unknown]
  - Alpha 1 foetoprotein increased [Not Recovered/Not Resolved]
  - Gout [Recovering/Resolving]
  - Drug ineffective for unapproved indication [None]
  - Vomiting [Not Recovered/Not Resolved]

NARRATIVE: CASE EVENT DATE: 2014
